FAERS Safety Report 7661376-5 (Version None)
Quarter: 2011Q3

REPORT INFORMATION
  Report Type: 
  Country: None (occurrence: None)
  Receive Date: 20110805
  Receipt Date: 20101007
  Transmission Date: 20111222
  Serious: No
  Sender: FDA-Public Use
  Company Number: US-ABBOTT-10P-163-0676634-00

PATIENT
  Sex: Male

DRUGS (12)
  1. ASPIRIN [Suspect]
  2. BENICAR [Concomitant]
     Indication: PRODUCT USED FOR UNKNOWN INDICATION
     Route: 048
  3. CLARITIN [Concomitant]
     Indication: PRODUCT USED FOR UNKNOWN INDICATION
  4. LIPITOR [Concomitant]
     Indication: PRODUCT USED FOR UNKNOWN INDICATION
  5. VIT C [Concomitant]
     Indication: PRODUCT USED FOR UNKNOWN INDICATION
  6. VIT E [Concomitant]
     Indication: PRODUCT USED FOR UNKNOWN INDICATION
  7. NOVALOG PUMP [Concomitant]
     Indication: PRODUCT USED FOR UNKNOWN INDICATION
  8. VIT D3 [Concomitant]
     Indication: PRODUCT USED FOR UNKNOWN INDICATION
  9. NIASPAN [Suspect]
     Dates: end: 20100901
  10. ZETIA [Concomitant]
     Indication: PRODUCT USED FOR UNKNOWN INDICATION
  11. NIASPAN [Suspect]
     Indication: HIGH DENSITY LIPOPROTEIN DECREASED
     Dosage: AT BEDTIME
     Route: 048
  12. ASPIRIN [Suspect]
     Indication: PROPHYLAXIS

REACTIONS (2)
  - IRRITABLE BOWEL SYNDROME [None]
  - FLUSHING [None]
